FAERS Safety Report 4772182-3 (Version None)
Quarter: 2005Q3

REPORT INFORMATION
  Report Type: 
  Country: None (occurrence: None)
  Receive Date: 20050919
  Receipt Date: 20041013
  Transmission Date: 20060218
  Serious: Yes (Other)
  Sender: FDA-Public Use
  Company Number: US-BRISTOL-MYERS SQUIBB COMPANY-12731766

PATIENT
  Age: 76 Year
  Sex: Female

DRUGS (1)
  1. DEFINITY [Suspect]
     Indication: ECHOCARDIOGRAM
     Route: 040
     Dates: start: 20041013, end: 20041013

REACTIONS (4)
  - BACK PAIN [None]
  - DYSPNOEA [None]
  - HYPOTENSION [None]
  - NAUSEA [None]
